FAERS Safety Report 23786224 (Version 2)
Quarter: 2024Q2

REPORT INFORMATION
  Report Type: Report from Study
  Country: US (occurrence: US)
  Receive Date: 20240426
  Receipt Date: 20240528
  Transmission Date: 20240716
  Serious: Yes (Death, Other)
  Sender: FDA-Public Use
  Company Number: US-ACADIA PHARMACEUTICALS INC.-ACA-2024-PIM-001953

PATIENT
  Age: 67 Year
  Sex: Female

DRUGS (41)
  1. NUPLAZID [Suspect]
     Active Substance: PIMAVANSERIN TARTRATE
     Indication: Parkinson^s disease
     Dosage: 34 MILLIGRAM, QD
     Route: 048
     Dates: start: 202001
  2. NUPLAZID [Suspect]
     Active Substance: PIMAVANSERIN TARTRATE
     Dosage: 34 MILLIGRAM, QD
     Route: 048
     Dates: start: 20210202
  3. ACETAMINOPHEN [Concomitant]
     Active Substance: ACETAMINOPHEN
     Dosage: 500 MG, 1 TABLET THREE TIMES DAILY
     Dates: start: 20211212
  4. ALBUTEROL SULFATE [Concomitant]
     Active Substance: ALBUTEROL SULFATE
     Dosage: INHALE 2 PUFFS BY MOUTH SIX TIMES DAILY AS NEEDED
  5. ALLOPURINOL [Concomitant]
     Active Substance: ALLOPURINOL
     Dosage: 100 MILLIGRAM, QD
     Route: 048
  6. ASPIRIN [Concomitant]
     Active Substance: ASPIRIN
     Dosage: 81 MILLIGRAM, QD
     Dates: start: 20211212
  7. BISACODYL [Concomitant]
     Active Substance: BISACODYL
     Dosage: INSERT 1 SUPPOSITORY EVERYDAY BY RECTAL ROUTE AS NEEDED
     Route: 054
     Dates: start: 20240319
  8. CARBIDOPA LEVODOPA [Concomitant]
     Active Substance: CARBIDOPA\LEVODOPA
     Dosage: 25MG-100MG, TAKE 3 TABLETS BY MOUTH IN THE MORNING AND 2 AT NOON AND 1 IN THE EVENING
  9. BETAMETHASONE\CLOTRIMAZOLE [Concomitant]
     Active Substance: BETAMETHASONE\CLOTRIMAZOLE
     Dosage: 1 %-0.05 %, APPLY SMALL AMOUNT OF CREAM TO AFFECTED AREA TWICE DAILY FOR 7 DAYS THEN ONCE DAILY FOR
  10. COLACE [Concomitant]
     Active Substance: DOCUSATE SODIUM
     Dosage: 100 MILLIGRAM, QD
     Dates: start: 20211212
  11. FAMOTIDINE [Concomitant]
     Active Substance: FAMOTIDINE
     Dosage: 40 MILLIGRAM, BID
     Route: 048
  12. FENTANYL [Concomitant]
     Active Substance: FENTANYL\FENTANYL CITRATE
     Dosage: 25 MICROGRAM, APPLY 1 PATCH TOPICALLY EVERY 3 DAYS
     Route: 062
  13. GABAPENTIN [Concomitant]
     Active Substance: GABAPENTIN
     Dosage: 300 MILLIGRAM, TAKE 2 CAPSULES BY MOUTH IN THE MORNING AND 1 CAPSULE AND DAY AND 2 CAPSULES AT BEDTI
     Route: 048
  14. LANTUS SOLOSTAR [Concomitant]
     Active Substance: INSULIN GLARGINE
     Dosage: U-100 INSULIN 100 UNIT/ML (3ML) SUBCUTANEOUS PEN, INJECT 34 UNITS SUBCUTANEOUSLY TWICE DAILY
  15. LINZESS [Concomitant]
     Active Substance: LINACLOTIDE
     Dosage: 72 MICROGRAM, TAKE 1 CAPSULE BY MOUTH 30 MINUTES BEFORE MORNING MEAL
  16. LORAZEPAM [Concomitant]
     Active Substance: LORAZEPAM
     Dosage: 0.5 MG TABLET BY MOUTH THREE TIMES DAILY
     Dates: start: 20240222
  17. LUTEIN [Concomitant]
     Active Substance: LUTEIN
     Dosage: 20 MILLIGRAM, QD
     Dates: start: 20211212
  18. MAGNESIUM OXIDE [Concomitant]
     Active Substance: MAGNESIUM OXIDE
     Dosage: 400 MG (241.3 MAGNESIUM), ONE TABLET DAILY
     Dates: start: 20211212
  19. METFORMIN [Concomitant]
     Active Substance: METFORMIN HYDROCHLORIDE
     Dosage: 500 MILLIGRAM, BID
     Route: 048
  20. METOPROLOL TARTRATE [Concomitant]
     Active Substance: METOPROLOL TARTRATE
     Dosage: 25 MILLIGRAM, BID
     Route: 048
  21. MICONAZOLE [Concomitant]
     Active Substance: MICONAZOLE
     Dosage: 2 % TOPICAL CREAM, 1 APPLICATION TWO TIMES DAILY
     Route: 061
     Dates: start: 20240326
  22. MIRALAX [Concomitant]
     Active Substance: POLYETHYLENE GLYCOL 3350
     Dosage: 17 GRAM
     Route: 048
     Dates: start: 20211212
  23. VITAMINS [Concomitant]
     Active Substance: VITAMINS
     Dosage: 1 TABLET DAILY
     Route: 048
     Dates: start: 20211212
  24. VITAMINS [Concomitant]
     Active Substance: VITAMINS
     Dosage: WOMEN 50 PLUS
     Dates: start: 20200331
  25. OMEPRAZOLE [Concomitant]
     Active Substance: DONEPEZIL HYDROCHLORIDE\OMEPRAZOLE\OMEPRAZOLE MAGNESIUM
     Dosage: 40 MILLIGRAM, TAKE 1 CAPSULE BY MOUTH AT BEDTIME
  26. POTASSIUM CHLORIDE EXTENDED RELEASE [Concomitant]
     Active Substance: POTASSIUM CHLORIDE
     Dosage: 20 MILLIEQUIVALENT, QD
     Route: 048
  27. QUETIAPINE [Concomitant]
     Active Substance: QUETIAPINE
     Dosage: 100 MILLIGRAM, TID
     Route: 048
  28. SENNA LEAF [Concomitant]
     Active Substance: SENNA LEAF
     Dosage: 58.6 MG-50MG, TAKE 2 TABLETS TWO TIMES DAILY
     Dates: start: 20211212
  29. SENNA LEAF [Concomitant]
     Active Substance: SENNA LEAF
     Dosage: 8.6-50 MG ORAL TABLET, 2 TABLET TWO TIMES DAILY
     Dates: start: 20200331
  30. TIZANIDINE [Concomitant]
     Active Substance: TIZANIDINE
     Dosage: 4 MILLIGRAM, TID, TAKE 1 AND 1/2 TABLET BY MOUTH THREE TIMES DAILY
  31. TORSEMIDE [Concomitant]
     Active Substance: TORSEMIDE
     Dosage: 20 MILLIGRAM, QD
     Route: 048
  32. TRAZODONE [Concomitant]
     Active Substance: TRAZODONE HYDROCHLORIDE
     Dosage: 150 MILLIGRAM, TAKE 1 TABLET BY MOUTH AT BEDTIME
  33. VENLAFAXINE [Concomitant]
     Active Substance: VENLAFAXINE HYDROCHLORIDE
     Dosage: TAKE 2 CAPSULES BY MOUTH ONCE DAILY IN THE MORNING
  34. DOXYCYCLINE [Concomitant]
     Active Substance: DOXYCYCLINE\DOXYCYCLINE HYCLATE
     Dosage: 100 MILLIGRAM, BID
  35. KETOROLAC TROMETHAMINE [Concomitant]
     Active Substance: KETOROLAC TROMETHAMINE
     Dosage: 0.5 % OPHTHALMIC SOLUTION ONE DROP INTO THE RIGHT EYE, 3 TIMES DAILY
  36. SILICON [Concomitant]
     Active Substance: SILICON
     Dosage: 1 % OPHTHALMIC SUSPENSION PLACE 1 DROP INTO THE RIGHT EYE 3 TIMES DAILY
  37. CALMOSEPTINE [ZINC OXIDE] [Concomitant]
     Dosage: 0.44-20.625 %, EXTERNAL OINTMENT, 1 (ONE) OINTMENT % APPLY TO AFFECTED AREA ONCE OR TWICE DAILY-PER
     Dates: start: 20140204
  38. MICONAZOLE NITRATE [Concomitant]
     Active Substance: MICONAZOLE NITRATE
     Dosage: 2 % POWDER, 1 APPLICATION TWICE DAILY
     Dates: start: 20190731
  39. ASCORBIC ACID\CRANBERRY [Concomitant]
     Active Substance: ASCORBIC ACID\CRANBERRY
     Dosage: 405 MG ORAL, 1 CAPSULE DAILY
     Dates: start: 20210606
  40. FISH OIL [Concomitant]
     Active Substance: FISH OIL
     Dosage: 1200 MG , 1 CAPSULE DAILY
     Dates: start: 20200331
  41. PROBIOTICS NOS [Concomitant]
     Active Substance: PROBIOTICS NOS
     Dosage: 1 CAPSULE DAILY
     Dates: start: 20200331

REACTIONS (1)
  - Death [Fatal]

NARRATIVE: CASE EVENT DATE: 20240301
